FAERS Safety Report 16543385 (Version 1)
Quarter: 2019Q3

REPORT INFORMATION
  Report Type: Spontaneous
  Country: US (occurrence: US)
  Receive Date: 20190709
  Receipt Date: 20190709
  Transmission Date: 20191004
  Serious: No
  Sender: FDA-Public Use
  Company Number: US-TEVA-2019-US-1067784

PATIENT
  Sex: Male
  Weight: 100 kg

DRUGS (12)
  1. METOPROLOL TARTRATE. [Concomitant]
     Active Substance: METOPROLOL TARTRATE
  2. OMEPRAZOLE. [Concomitant]
     Active Substance: OMEPRAZOLE
  3. GAVILAX POWDER [Concomitant]
  4. MINTOX PLUS TABLET CHEWABLE [Concomitant]
  5. CENTRUM MULTIVITAMIN [Concomitant]
  6. LORAZEPAM. [Concomitant]
     Active Substance: LORAZEPAM
  7. CITRATE OF MAGNESIA SOLUTION [Concomitant]
  8. CLOZAPINE. [Suspect]
     Active Substance: CLOZAPINE
     Indication: SCHIZOPHRENIA
     Dates: start: 2017
  9. MILK OF MAGNESIA SOLUTION [Concomitant]
  10. VALPROIC ACID SOLUTION [Concomitant]
  11. FLUPHENAZINE [Concomitant]
     Active Substance: FLUPHENAZINE
  12. MICONAZOLE AF [Concomitant]

REACTIONS (7)
  - Feeding disorder [Unknown]
  - Weight increased [Unknown]
  - Product dose omission [Unknown]
  - Malaise [Unknown]
  - Wrong technique in product usage process [Unknown]
  - Psychotic disorder [Unknown]
  - Off label use [Unknown]
